FAERS Safety Report 4533569-7 (Version None)
Quarter: 2004Q4

REPORT INFORMATION
  Report Type: 
  Country: None (occurrence: None)
  Receive Date: 20041210
  Receipt Date: 20040915
  Transmission Date: 20050328
  Serious: Yes (Hospitalization)
  Sender: FDA-Public Use
  Company Number: A03200403176

PATIENT
  Age: 67 Year
  Sex: Female
  Weight: 54.4316 kg

DRUGS (3)
  1. ELOXATIN [Suspect]
     Indication: COLON CANCER METASTATIC
     Dosage: 200 MG OTHER-INTRAVENOUS NOS
     Route: 042
     Dates: start: 20040910, end: 20040910
  2. GRANISETRON [Concomitant]
  3. DEXAMETHASONE [Concomitant]

REACTIONS (2)
  - DYSAESTHESIA [None]
  - DYSPNOEA [None]
